FAERS Safety Report 15413932 (Version 1)
Quarter: 2018Q3

REPORT INFORMATION
  Report Type: Spontaneous
  Country: US (occurrence: US)
  Receive Date: 20180921
  Receipt Date: 20180921
  Transmission Date: 20181010
  Serious: No
  Sender: FDA-Public Use
  Company Number: US-NOVOPROD-595665

PATIENT
  Age: 58 Year
  Sex: Female

DRUGS (1)
  1. VICTOZA [Suspect]
     Active Substance: LIRAGLUTIDE
     Indication: TYPE 2 DIABETES MELLITUS
     Dosage: 1.2 MG, QD IN THE MORNING
     Route: 058
     Dates: start: 20180119, end: 2018

REACTIONS (3)
  - Nausea [Recovered/Resolved]
  - Insomnia [Recovered/Resolved]
  - Nocturia [Recovered/Resolved]

NARRATIVE: CASE EVENT DATE: 2018
